FAERS Safety Report 9432029 (Version 2)
Quarter: 2014Q1

REPORT INFORMATION
  Report Type: Spontaneous
  Country: GB (occurrence: GB)
  Receive Date: 20130731
  Receipt Date: 20140122
  Transmission Date: 20141002
  Serious: Yes (Other)
  Sender: FDA-Public Use
  Company Number: GB-ACCORD-018719

PATIENT
  Age: 69 Year
  Sex: Female

DRUGS (6)
  1. HYALURONATE SODIUM/HYALURONIC ACID [Concomitant]
  2. SIMVASTATIN [Concomitant]
     Indication: TRANSIENT ISCHAEMIC ATTACK
     Dosage: 40 MG
     Dates: start: 20130710
  3. FLUOXETINE [Concomitant]
  4. OTOMIZE [Suspect]
     Indication: EAR PAIN
     Dates: start: 20130630, end: 20130701
  5. OMEGA-3 FATTY ACIDS [Concomitant]
  6. CLOPIDOGREL [Suspect]
     Indication: TRANSIENT ISCHAEMIC ATTACK
     Dosage: 75 MG
     Dates: start: 20130711

REACTIONS (1)
  - Transient ischaemic attack [Unknown]
